FAERS Safety Report 14240330 (Version 1)
Quarter: 2017Q4

REPORT INFORMATION
  Report Type: Spontaneous
  Country: US (occurrence: US)
  Receive Date: 20171129
  Receipt Date: 20171129
  Transmission Date: 20180321
  Serious: Yes (Other)
  Sender: FDA-Public Use
  Company Number: None

PATIENT
  Age: 22 Year
  Sex: Female
  Weight: 139.5 kg

DRUGS (7)
  1. IBUPROFEN. [Concomitant]
     Active Substance: IBUPROFEN
  2. QUETIAPINE. [Concomitant]
     Active Substance: QUETIAPINE
  3. TYLENOL [Concomitant]
     Active Substance: ACETAMINOPHEN
  4. NEXPLANON [Suspect]
     Active Substance: ETONOGESTREL
     Indication: CONTRACEPTION
     Dosage: 1 NEXPLANON IMPLANT;1 EVERY 3 YEARS; INSERTED INTO ARM AND CUT OUT OF ARM?
  5. BUSPIRONE [Concomitant]
     Active Substance: BUSPIRONE HYDROCHLORIDE
  6. ORTHO CYCLIN [Concomitant]
  7. TUMS [Concomitant]
     Active Substance: CALCIUM CARBONATE

REACTIONS (2)
  - Implant site pain [None]
  - Device breakage [None]

NARRATIVE: CASE EVENT DATE: 20171126
